FAERS Safety Report 6022412-5 (Version None)
Quarter: 2008Q4

REPORT INFORMATION
  Report Type: 
  Country: None (occurrence: None)
  Receive Date: 20081230
  Receipt Date: 20081226
  Transmission Date: 20090506
  Serious: Yes (Hospitalization, Other)
  Sender: FDA-Public Use
  Company Number: US-BAYER-200833861NA

PATIENT
  Age: 19 Year
  Sex: Male
  Weight: 81 kg

DRUGS (28)
  1. CAMPATH [Suspect]
     Indication: RENAL TRANSPLANT
     Dosage: AS USED: 20 MG
     Route: 042
     Dates: start: 20050608, end: 20050608
  2. CAMPATH [Suspect]
     Dosage: AS USED: 20 MG
     Route: 042
     Dates: start: 20050610, end: 20050610
  3. NORVASC [Concomitant]
     Dates: start: 20050613
  4. CELLCEPT [Concomitant]
  5. CELLCEPT [Concomitant]
     Dosage: AS USED: 750-500 MG
     Dates: start: 20061020
  6. CEFTRIAXONE [Concomitant]
     Dosage: TOTAL DAILY DOSE: 1 G
     Route: 042
     Dates: start: 20070101, end: 20070129
  7. CEFTRIAXONE [Concomitant]
     Dates: start: 20061013
  8. CEFTRIAXONE [Concomitant]
     Dates: start: 20050907, end: 20051010
  9. OMEPRAZOLE [Concomitant]
     Dates: start: 20050610
  10. VALCYTE [Concomitant]
     Dates: start: 20061020
  11. VALCYTE [Concomitant]
  12. MAGNESIUM OXIDE [Concomitant]
     Dates: start: 20050705, end: 20051116
  13. MULTI-VITAMINS [Concomitant]
     Dates: start: 20050718, end: 20060710
  14. SIROLIMUS [Concomitant]
     Dosage: TOTAL DAILY DOSE: 2 MG
     Route: 048
     Dates: end: 20060101
  15. SIROLIMUS [Concomitant]
  16. LIPITOR [Concomitant]
     Dates: start: 20051010
  17. AMLODIPINE [Concomitant]
     Dates: start: 20050613
  18. CLONIDINE [Concomitant]
     Dates: start: 20051010
  19. LOTENSIN [Concomitant]
     Dates: start: 20060424
  20. PROGRAF [Concomitant]
     Dates: start: 20060101
  21. PROGRAF [Concomitant]
     Dates: start: 20050610
  22. FLUCONAZOLE [Concomitant]
  23. FLUCONAZOLE [Concomitant]
     Dates: start: 20061020
  24. DAPSONE [Concomitant]
     Route: 048
     Dates: start: 20050927
  25. DAPSONE [Concomitant]
     Dates: start: 20061020
  26. SODIUM BICARBONATE [Concomitant]
     Indication: ACIDOSIS
     Dates: start: 20061001
  27. MAGNESIUM OXIDE [Concomitant]
     Indication: HYPOMAGNESAEMIA
     Dates: start: 20061001
  28. SEPTRA [Concomitant]
     Dates: end: 20050927

REACTIONS (8)
  - BK VIRUS INFECTION [None]
  - ESCHERICHIA INFECTION [None]
  - GRANULOMA [None]
  - HAEMODIALYSIS [None]
  - TRANSPLANT FAILURE [None]
  - TRANSPLANT REJECTION [None]
  - TREATMENT NONCOMPLIANCE [None]
  - TUBULOINTERSTITIAL NEPHRITIS [None]
